FAERS Safety Report 5627076-8 (Version None)
Quarter: 2008Q1

REPORT INFORMATION
  Report Type: 
  Country: None (occurrence: None)
  Receive Date: 20080115
  Receipt Date: 20070626
  Transmission Date: 20080703
  Serious: Yes (Other)
  Sender: FDA-Public Use
  Company Number: 2007019906

PATIENT
  Sex: Female

DRUGS (1)
  1. AROMASIN [Suspect]
     Indication: BREAST CANCER
     Dosage: 25 MG (25 MG,DAILY),ORAL
     Route: 048
     Dates: start: 20020101, end: 20070101

REACTIONS (9)
  - BREAST CANCER RECURRENT [None]
  - CONSTIPATION [None]
  - CONTRALATERAL BREAST CANCER [None]
  - EYE DISORDER [None]
  - INSOMNIA [None]
  - NEUROPATHY PERIPHERAL [None]
  - PRURITUS [None]
  - RASH MACULAR [None]
  - WEIGHT INCREASED [None]
